FAERS Safety Report 5187796-9 (Version None)
Quarter: 2006Q4

REPORT INFORMATION
  Report Type: 
  Country: None (occurrence: None)
  Receive Date: 20061212
  Receipt Date: 20061201
  Transmission Date: 20070319
  Serious: Yes (Other)
  Sender: FDA-Public Use
  Company Number: 2006148290

PATIENT
  Age: 27 Year
  Sex: Male
  Weight: 95.2554 kg

DRUGS (1)
  1. LISTERINE VANILLA MINT (MENTHOL, METHYL SALICYLATE, EUCALYPTOL, THYMOL [Suspect]
     Indication: DENTAL DISORDER PROPHYLAXIS
     Dosage: A CAP FULL ONCE, ORAL
     Route: 048
     Dates: start: 20061127, end: 20061127

REACTIONS (4)
  - COUGH [None]
  - PHARYNGEAL ERYTHEMA [None]
  - TONGUE DISORDER [None]
  - VOMITING [None]
